FAERS Safety Report 7302424-1 (Version None)
Quarter: 2011Q1

REPORT INFORMATION
  Report Type: 
  Country: None (occurrence: None)
  Receive Date: 20110218
  Receipt Date: 20110207
  Transmission Date: 20110831
  Serious: Yes (Hospitalization)
  Sender: FDA-Public Use
  Company Number: JP-CELGENEUS-087-21880-11020772

PATIENT
  Sex: Male

DRUGS (8)
  1. REVLIMID [Suspect]
     Indication: MULTIPLE MYELOMA
     Route: 048
     Dates: start: 20101007, end: 20101019
  2. VERAPAMIL HCL [Concomitant]
     Indication: ATRIAL FIBRILLATION
     Route: 048
     Dates: end: 20101026
  3. ZYLORIC [Concomitant]
     Route: 048
     Dates: end: 20101026
  4. DIFLUCAN [Concomitant]
     Route: 048
     Dates: end: 20101026
  5. ARTIST [Concomitant]
     Indication: HYPERTENSION
     Route: 048
     Dates: end: 20101026
  6. OXYCONTIN [Concomitant]
     Route: 048
     Dates: end: 20101026
  7. MAGLAX [Concomitant]
     Indication: CONSTIPATION
     Route: 048
     Dates: end: 20101026
  8. FLUITRAN [Concomitant]
     Indication: HYPERTENSION
     Route: 048
     Dates: end: 20101026

REACTIONS (1)
  - ILEUS PARALYTIC [None]
